FAERS Safety Report 4705043-6 (Version None)
Quarter: 2005Q3

REPORT INFORMATION
  Report Type: 
  Country: None (occurrence: None)
  Receive Date: 20050701
  Receipt Date: 20050624
  Transmission Date: 20060218
  Serious: Yes (Other)
  Sender: FDA-Public Use
  Company Number: PHEH2005US07177

PATIENT
  Age: 67 Year
  Sex: Female

DRUGS (2)
  1. FEMARA [Suspect]
     Indication: BREAST CANCER
     Dosage: 2.5 MG, QD
     Route: 048
     Dates: start: 20040301
  2. XANAX [Concomitant]

REACTIONS (4)
  - BIOPSY THYROID GLAND [None]
  - DYSPHAGIA [None]
  - ROAD TRAFFIC ACCIDENT [None]
  - THYROID NEOPLASM [None]
